FAERS Safety Report 6920855-6 (Version None)
Quarter: 2010Q3

REPORT INFORMATION
  Report Type: 
  Country: None (occurrence: None)
  Receive Date: 20100812
  Receipt Date: 20100809
  Transmission Date: 20110219
  Serious: Yes (Life-Threatening)
  Sender: FDA-Public Use
  Company Number: US-ROXANE LABORATORIES, INC.-2010-RO-01002RO

PATIENT

DRUGS (2)
  1. DEXAMETHASONE [Suspect]
     Indication: FOETAL CARDIAC DISORDER
     Route: 064
  2. TERBUTALINE SULFATE [Suspect]
     Indication: FOETAL HEART RATE DECREASED
     Route: 064

REACTIONS (1)
  - CARDIAC FAILURE [None]
